FAERS Safety Report 18765402 (Version 1)
Quarter: 2021Q1

REPORT INFORMATION
  Report Type: Spontaneous
  Country: CA (occurrence: CA)
  Receive Date: 20210120
  Receipt Date: 20210120
  Transmission Date: 20210419
  Serious: Yes (Hospitalization)
  Sender: FDA-Public Use
  Company Number: CA-TEVA-2021-CA-1868943

PATIENT
  Age: 94 Year
  Sex: Female

DRUGS (4)
  1. NORFLOXACIN [Concomitant]
     Active Substance: NORFLOXACIN
  2. PREDNISONE. [Concomitant]
     Active Substance: PREDNISONE
  3. AMOXICILLIN. [Concomitant]
     Active Substance: AMOXICILLIN
  4. PANTOPRAZOLE [Suspect]
     Active Substance: PANTOPRAZOLE
     Indication: PRODUCT USED FOR UNKNOWN INDICATION
     Route: 065

REACTIONS (3)
  - Creatinine urine decreased [Recovered/Resolved]
  - Tubulointerstitial nephritis [Recovered/Resolved]
  - Eosinophils urine present [Recovered/Resolved]
